FAERS Safety Report 9844791 (Version 1)
Quarter: 2014Q1

REPORT INFORMATION
  Report Type: Spontaneous
  Country: US (occurrence: None)
  Receive Date: 20140122
  Receipt Date: 20140122
  Transmission Date: 20141002
  Serious: Yes (Death)
  Sender: FDA-Public Use
  Company Number: B0960470A

PATIENT
  Age: 53 Year
  Sex: Female

DRUGS (3)
  1. BUPROPION HYDROCHLORIDE UNSPECIFIED TABLET (GENERIC) (BUPROPION HYDROCHLORIDE) [Suspect]
  2. DIAMORPHINE HYDROCHLORIDE (FORMULATION UNKNOWN) (DIAMORPHINE HYDROCHLORIDE) [Suspect]
  3. TRAMADOL HYDROCHLORIDE (FORMULATION UNKNOWN) (GENERIC) (TRAMADOL HYDROCHLORIDE) [Suspect]

REACTIONS (1)
  - Drug abuse [None]
